FAERS Safety Report 8223452-8 (Version None)
Quarter: 2012Q1

REPORT INFORMATION
  Report Type: 
  Country: None (occurrence: None)
  Receive Date: 20120321
  Receipt Date: 20120313
  Transmission Date: 20120608
  Serious: Yes (Hospitalization, Other)
  Sender: FDA-Public Use
  Company Number: US-BAYER-2011-091014

PATIENT
  Age: 30 Year
  Sex: Female
  Weight: 101.13 kg

DRUGS (6)
  1. YASMIN [Suspect]
     Indication: CONTRACEPTION
     Dosage: UNK
     Dates: start: 20041101, end: 20080101
  2. FLONASE [Concomitant]
     Dosage: 50 ?G, 2 SQUIRTS EACH NOSTRIL
     Route: 045
  3. AMOXIL [Concomitant]
     Dosage: 500 MG, TID
     Route: 048
  4. IMITREX [Concomitant]
     Dosage: 50 MG, PRN
     Route: 048
  5. CLARITIN-D [Concomitant]
     Dosage: 5/120 1 EVERY 12 HOURS
     Route: 048
  6. HYDROCODONE [Concomitant]
     Indication: MIGRAINE
     Dosage: UNK
     Dates: start: 20070101

REACTIONS (11)
  - BILIARY DYSKINESIA [None]
  - GALLBLADDER INJURY [None]
  - ANXIETY [None]
  - ABDOMINAL PAIN UPPER [None]
  - PAIN [None]
  - GENERAL PHYSICAL HEALTH DETERIORATION [None]
  - CHOLECYSTITIS [None]
  - GALLBLADDER DISORDER [None]
  - SCAR [None]
  - EMOTIONAL DISTRESS [None]
  - DIARRHOEA [None]
